FAERS Safety Report 24385199 (Version 5)
Quarter: 2025Q1

REPORT INFORMATION
  Report Type: Spontaneous
  Country: US (occurrence: US)
  Receive Date: 20241001
  Receipt Date: 20250128
  Transmission Date: 20250408
  Serious: Yes (Other)
  Sender: SUNOVION
  Company Number: US-SUMITOMO PHARMA SWITZERLAND GMBH-2024SPA002741

PATIENT

DRUGS (1)
  1. GEMTESA [Suspect]
     Active Substance: VIBEGRON
     Route: 048

REACTIONS (5)
  - Type 2 diabetes mellitus [Unknown]
  - Nocturia [Unknown]
  - Therapy interrupted [Unknown]
  - Adverse event [Unknown]
  - Surgery [Unknown]
